FAERS Safety Report 7071672-0 (Version None)
Quarter: 2010Q4

REPORT INFORMATION
  Report Type: 
  Country: None (occurrence: None)
  Receive Date: 20101029
  Receipt Date: 20091005
  Transmission Date: 20110411
  Serious: No
  Sender: FDA-Public Use
  Company Number: A0810391A

PATIENT
  Age: 72 Year
  Sex: Female

DRUGS (13)
  1. ADVAIR DISKUS 100/50 [Suspect]
     Indication: SARCOIDOSIS
     Dosage: 1PUFF TWICE PER DAY
     Route: 055
     Dates: start: 20090820
  2. ASACOL [Concomitant]
  3. LEVOTHYROXINE [Concomitant]
  4. ALENDRONATE SODIUM [Concomitant]
  5. FEXOFENADINE HCL [Concomitant]
  6. OMEPRAZOLE [Concomitant]
  7. ASPIRIN [Concomitant]
  8. ADVAIR DISKUS 100/50 [Concomitant]
  9. SINGULAIR [Concomitant]
  10. ADDERALL 10 [Concomitant]
  11. CITRUCEL [Concomitant]
  12. SALINE NASAL SPRAY [Concomitant]
  13. SYSTANE [Concomitant]
     Route: 047

REACTIONS (1)
  - DRUG INEFFECTIVE [None]
